FAERS Safety Report 6989611-7 (Version None)
Quarter: 2010Q3

REPORT INFORMATION
  Report Type: 
  Country: None (occurrence: None)
  Receive Date: 20100916
  Receipt Date: 20100201
  Transmission Date: 20110219
  Serious: Yes (Other)
  Sender: FDA-Public Use
  Company Number: ES-PFIZER INC-2010012653

PATIENT
  Age: 32 Year
  Sex: Female
  Weight: 68 kg

DRUGS (4)
  1. LYRICA [Suspect]
     Indication: NEURALGIA
     Dosage: 150 MG, 2X/DAY ( 150MG IN THE MORNING AND 150MG AT NIGHT)
     Route: 048
     Dates: start: 20091105
  2. LYRICA [Suspect]
     Dosage: 75 MG, 2X/DAY(75MG IN THE MORNING AND 75MG AT NIGHT)
     Dates: start: 20081001, end: 20091104
  3. ACETAMINOPHEN AND TRAMADOL HCL [Concomitant]
     Dosage: UNK
  4. METAMIZOLE [Concomitant]
     Dosage: UNK

REACTIONS (1)
  - MENSTRUATION DELAYED [None]
